FAERS Safety Report 6623841-9 (Version None)
Quarter: 2010Q1

REPORT INFORMATION
  Report Type: 
  Country: None (occurrence: None)
  Receive Date: 20100310
  Receipt Date: 20100225
  Transmission Date: 20100710
  Serious: Yes (Hospitalization)
  Sender: FDA-Public Use
  Company Number: PHHY2010JP09503

PATIENT
  Age: 49 Year
  Sex: Female

DRUGS (6)
  1. SANDIMMUNE [Suspect]
     Indication: CORD BLOOD TRANSPLANT THERAPY
     Dosage: UNK
     Route: 042
     Dates: start: 20090310
  2. SANDIMMUNE [Suspect]
     Indication: PROPHYLAXIS AGAINST GRAFT VERSUS HOST DISEASE
  3. METHOTREXATE [Suspect]
     Indication: CORD BLOOD TRANSPLANT THERAPY
     Dosage: UNK
     Dates: start: 20090310
  4. METHOTREXATE [Suspect]
     Indication: PROPHYLAXIS AGAINST GRAFT VERSUS HOST DISEASE
  5. RED BLOOD CELLS [Concomitant]
  6. PLATELETS [Concomitant]

REACTIONS (6)
  - ACUTE RESPIRATORY FAILURE [None]
  - IDIOPATHIC PNEUMONIA SYNDROME [None]
  - MECHANICAL VENTILATION [None]
  - OXYGEN CONSUMPTION DECREASED [None]
  - PYREXIA [None]
  - TRANSFUSION-RELATED ACUTE LUNG INJURY [None]
